FAERS Safety Report 16111920 (Version 1)
Quarter: 2019Q1

REPORT INFORMATION
  Report Type: Spontaneous
  Country: US (occurrence: US)
  Receive Date: 20190325
  Receipt Date: 20190325
  Transmission Date: 20190418
  Serious: No
  Sender: FDA-Public Use
  Company Number: US-TEVA-2019-US-1020283

PATIENT
  Age: 60 Year
  Sex: Female

DRUGS (4)
  1. TEVA VENLAFAXINE ER [Suspect]
     Active Substance: VENLAFAXINE HYDROCHLORIDE
     Indication: DEPRESSION
     Dosage: STRENGTH : 37.5 MG
     Route: 065
     Dates: start: 20180727
  2. XANAX [Suspect]
     Active Substance: ALPRAZOLAM
     Indication: ANXIETY
     Route: 065
  3. XANAX [Suspect]
     Active Substance: ALPRAZOLAM
     Indication: DEPRESSION
  4. TEVA VENLAFAXINE ER [Suspect]
     Active Substance: VENLAFAXINE HYDROCHLORIDE
     Indication: ANXIETY

REACTIONS (7)
  - Feeling jittery [Unknown]
  - Anxiety [Recovered/Resolved]
  - Dyskinesia [Unknown]
  - Middle insomnia [Unknown]
  - Muscle twitching [Unknown]
  - Product substitution issue [Unknown]
  - Nervousness [Unknown]
